FAERS Safety Report 16992888 (Version 2)
Quarter: 2019Q4

REPORT INFORMATION
  Report Type: Spontaneous
  Country: JP (occurrence: JP)
  Receive Date: 20191105
  Receipt Date: 20191213
  Transmission Date: 20200122
  Serious: Yes (Other)
  Sender: FDA-Public Use
  Company Number: JP-ELI_LILLY_AND_COMPANY-JP201910015914

PATIENT
  Age: 68 Year
  Sex: Male

DRUGS (9)
  1. ANTEBATE [Concomitant]
     Active Substance: BETAMETHASONE DIPROPIONATE
     Indication: PROPHYLAXIS
     Dosage: UNK
  2. BESOFTEN [Concomitant]
     Active Substance: PENTOSAN POLYSULFATE SODIUM
     Indication: PROPHYLAXIS
     Dosage: UNK
  3. DIFFERIN [Concomitant]
     Active Substance: ADAPALENE
     Indication: PROPHYLAXIS
     Dosage: UNK
  4. ALMETA [Concomitant]
     Active Substance: ALCLOMETASONE DIPROPIONATE
     Indication: PROPHYLAXIS
     Dosage: UNK
  5. ERBITUX [Suspect]
     Active Substance: CETUXIMAB
     Indication: OROPHARYNGEAL CANCER
     Dosage: 400 MG/M2, UNK
     Route: 041
     Dates: start: 20161215
  6. CARBOPLATIN. [Concomitant]
     Active Substance: CARBOPLATIN
     Indication: OROPHARYNGEAL CANCER
     Dosage: UNK UNK, OTHER (AUC 5)
     Route: 041
  7. MINOCYCLINE [Concomitant]
     Active Substance: MINOCYCLINE HYDROCHLORIDE
     Indication: PROPHYLAXIS
     Dosage: UNK
  8. FLUOROURACIL. [Suspect]
     Active Substance: FLUOROURACIL
     Indication: OROPHARYNGEAL CANCER
     Dosage: 1000 MG/M2, UNKNOWN
     Route: 042
  9. ERBITUX [Suspect]
     Active Substance: CETUXIMAB
     Dosage: 250 MG/M2, WEEKLY (1/W)
     Route: 041
     Dates: end: 20170118

REACTIONS (1)
  - Prinzmetal angina [Recovered/Resolved]
